FAERS Safety Report 10598035 (Version 1)
Quarter: 2014Q4

REPORT INFORMATION
  Report Type: Spontaneous
  Country: US (occurrence: None)
  Receive Date: 20141120
  Receipt Date: 20141120
  Transmission Date: 20150529
  Serious: Yes (Disabling)
  Sender: FDA-Public Use
  Company Number: None

PATIENT
  Age: 67 Year
  Sex: Female
  Weight: 78.02 kg

DRUGS (9)
  1. LISINOPRIL. [Suspect]
     Active Substance: LISINOPRIL
     Indication: HYPERTENSION
     Dosage: 10 MG, 1 PILL, ONCE A DAY, BY MOUTH
     Route: 048
     Dates: start: 20131001, end: 20140315
  2. PROGESTERONE. [Concomitant]
     Active Substance: PROGESTERONE
  3. ATENOLOL. [Concomitant]
     Active Substance: ATENOLOL
  4. CALCIUM [Concomitant]
     Active Substance: CALCIUM
  5. GLUCOSAMINE [Concomitant]
     Active Substance: GLUCOSAMINE
  6. ESTROGEN-METHYLTESTOSTERONE TB [Concomitant]
  7. OCUVITE ADULT 50+ [Concomitant]
  8. OMEGA 3 FISH OIL [Concomitant]
     Active Substance: FISH OIL\OMEGA-3 FATTY ACIDS
  9. JUICEPLUS [Concomitant]

REACTIONS (1)
  - Arthritis [None]
